FAERS Safety Report 7699184-1 (Version None)
Quarter: 2011Q3

REPORT INFORMATION
  Report Type: 
  Country: None (occurrence: None)
  Receive Date: 20110819
  Receipt Date: 20110812
  Transmission Date: 20111222
  Serious: No
  Sender: FDA-Public Use
  Company Number: US-BAYER-2011-067659

PATIENT
  Age: 43 Year
  Sex: Male

DRUGS (2)
  1. INTERFERON BETA-1B [Suspect]
     Indication: MULTIPLE SCLEROSIS
     Dosage: 2 MIU, QOD
     Route: 058
     Dates: start: 20110729
  2. TYLENOL ACHES + STRAINS [Concomitant]
     Dosage: 2 DF, UNK

REACTIONS (2)
  - INJECTION SITE ERYTHEMA [None]
  - HEADACHE [None]
